FAERS Safety Report 22189817 (Version 1)
Quarter: 2023Q2

REPORT INFORMATION
  Report Type: Spontaneous
  Country: US (occurrence: None)
  Receive Date: 20230410
  Receipt Date: 20230410
  Transmission Date: 20230722
  Serious: No
  Sender: FDA-Public Use
  Company Number: 2023A062521

PATIENT
  Age: 864 Month
  Sex: Female
  Weight: 65.8 kg

DRUGS (1)
  1. BUDESONIDE\FORMOTEROL FUMARATE DIHYDRATE [Suspect]
     Active Substance: BUDESONIDE\FORMOTEROL FUMARATE DIHYDRATE
     Indication: Wheezing
     Dosage: 160/4.5 MCG 120 DOSE INHALER 2 PUFFS TWICE A DAY 160UG/MG TWO TIMES A DAY
     Route: 055

REACTIONS (6)
  - Influenza [Unknown]
  - Asthenia [Unknown]
  - Product dose omission issue [Unknown]
  - Device use issue [Unknown]
  - Product use issue [Unknown]
  - Device malfunction [Unknown]

NARRATIVE: CASE EVENT DATE: 20221101
